FAERS Safety Report 4778847-1 (Version None)
Quarter: 2005Q3

REPORT INFORMATION
  Report Type: 
  Country: None (occurrence: None)
  Receive Date: 20050922
  Receipt Date: 20050909
  Transmission Date: 20060218
  Serious: Yes (Life-Threatening)
  Sender: FDA-Public Use
  Company Number: 217622

PATIENT
  Age: 65 Year
  Sex: Male

DRUGS (8)
  1. MABTHERA (RITUXIMAB) CONC FOR SOLUTION FOR INFUSION [Suspect]
     Indication: BURKITT'S LYMPHOMA
     Dosage: SEE IMAGE
     Route: 042
     Dates: start: 20050726
  2. MABTHERA (RITUXIMAB) CONC FOR SOLUTION FOR INFUSION [Suspect]
     Indication: BURKITT'S LYMPHOMA
     Dosage: SEE IMAGE
     Route: 042
     Dates: start: 20050729
  3. VINCRISTINE [Suspect]
     Indication: BURKITT'S LYMPHOMA
     Dosage: 2 MG, INTRAVENOUS
     Route: 042
     Dates: start: 20050727, end: 20050801
  4. METHOTREXATE [Suspect]
     Indication: BURKITT'S LYMPHOMA
     Dosage: SEE IMAGE
     Route: 042
     Dates: start: 20050727, end: 20050801
  5. METHOTREXATE [Suspect]
     Indication: BURKITT'S LYMPHOMA
     Dosage: SEE IMAGE
     Route: 042
     Dates: start: 20050729
  6. DOXORUBICINE (DOXORUBICN, DOXORUBICIN HYDROCHLORIDE) [Suspect]
     Indication: BURKITT'S LYMPHOMA
     Dosage: 90 MG, INTRAVENOUS
     Route: 042
     Dates: start: 20050728
  7. CYCLOPHOSPHAMIDE [Suspect]
     Indication: BURKITT'S LYMPHOMA
     Dosage: 1900 MG, INTRAVENOUS
     Route: 042
     Dates: start: 20050728
  8. PREDNISONE [Suspect]
     Indication: BURKITT'S LYMPHOMA
     Dosage: 90 MG
     Dates: start: 20050727

REACTIONS (15)
  - BACTERIA SPUTUM IDENTIFIED [None]
  - CANDIDIASIS [None]
  - CARDIAC VALVE VEGETATION [None]
  - CARDIOGENIC SHOCK [None]
  - CARDIOMEGALY [None]
  - CARDIOPULMONARY FAILURE [None]
  - CITROBACTER INFECTION [None]
  - DIARRHOEA [None]
  - ENDOCARDITIS [None]
  - LUNG DISORDER [None]
  - MUCOSAL INFLAMMATION [None]
  - MULTI-ORGAN FAILURE [None]
  - POST PROCEDURAL COMPLICATION [None]
  - PSEUDOMONAS INFECTION [None]
  - SEPTIC SHOCK [None]
